FAERS Safety Report 6146082-0 (Version None)
Quarter: 2009Q2

REPORT INFORMATION
  Report Type: 
  Country: None (occurrence: None)
  Receive Date: 20090407
  Receipt Date: 20090331
  Transmission Date: 20091009
  Serious: Yes (Death)
  Sender: FDA-Public Use
  Company Number: US-AMGEN-QUU340918

PATIENT
  Age: 60 Year

DRUGS (4)
  1. NEULASTA [Suspect]
     Indication: CHEMOTHERAPY
     Route: 065
  2. DOCETAXEL [Suspect]
     Indication: BREAST CANCER
     Route: 042
  3. CYCLOPHOSPHAMIDE [Suspect]
     Indication: BREAST CANCER
  4. DOXORUBICIN HCL [Suspect]
     Indication: BREAST CANCER

REACTIONS (1)
  - SEPSIS [None]
